FAERS Safety Report 6059511-8 (Version None)
Quarter: 2009Q1

REPORT INFORMATION
  Report Type: 
  Country: None (occurrence: None)
  Receive Date: 20090130
  Receipt Date: 20090122
  Transmission Date: 20090719
  Serious: Yes (Disabling, Other)
  Sender: FDA-Public Use
  Company Number: US-ELI_LILLY_AND_COMPANY-US200901003945

PATIENT
  Sex: Female

DRUGS (8)
  1. HUMALOG MIX 75/25 [Suspect]
  2. DOXAZOSIN MESYLATE [Concomitant]
     Indication: BLOOD PRESSURE
     Dosage: 4 MG, EACH EVENING
  3. METOPROLOL [Concomitant]
     Dosage: 25 MG, UNK
  4. DIPYRIDAMOLE [Concomitant]
     Dosage: 75 MG, 2/D
  5. CALCIFEROL [Concomitant]
     Dosage: 0.25 MG, UNK
  6. ASPIRIN [Concomitant]
     Dosage: UNK, DAILY (1/D)
  7. SIMVASTATIN [Concomitant]
     Indication: BLOOD PRESSURE
     Dosage: 40 MG, DAILY (1/D)
  8. CITALOPRAM HYDROBROMIDE [Concomitant]
     Dosage: 20 MG, DAILY (1/D)

REACTIONS (4)
  - ANAEMIA [None]
  - BLOOD PRESSURE ABNORMAL [None]
  - RENAL FAILURE [None]
  - VASCULAR GRAFT [None]
